FAERS Safety Report 7362697-6 (Version None)
Quarter: 2011Q1

REPORT INFORMATION
  Report Type: 
  Country: None (occurrence: None)
  Receive Date: 20110321
  Receipt Date: 20110311
  Transmission Date: 20110831
  Serious: Yes (Hospitalization)
  Sender: FDA-Public Use
  Company Number: US-BIOGENIDEC-2011BI002303

PATIENT
  Age: 61 Year
  Sex: Female

DRUGS (11)
  1. LYRICA [Concomitant]
     Indication: FIBROMYALGIA
     Dates: start: 19960101
  2. NEURONTIN [Concomitant]
     Indication: FIBROMYALGIA
     Dates: start: 19960101
  3. METOPROLOL [Concomitant]
     Indication: HYPERTENSION
     Dates: start: 19910101
  4. KLONOPIN [Concomitant]
  5. CYMBALTA [Concomitant]
     Indication: DEPRESSION
  6. PREVACID [Concomitant]
     Indication: BARRETT'S OESOPHAGUS
     Dates: start: 20050101
  7. LASIX [Concomitant]
     Indication: HYPERTENSION
     Dates: start: 19910101
  8. BACLOFEN [Concomitant]
     Indication: FIBROMYALGIA
     Dates: start: 19960101
  9. LISINOPRIL [Concomitant]
     Indication: HYPERTENSION
     Dates: start: 19910101
  10. POTASSIUM CHLORIDE [Concomitant]
     Indication: HYPERTENSION
     Dates: start: 19910101
  11. AVONEX [Suspect]
     Indication: MULTIPLE SCLEROSIS
     Route: 030
     Dates: start: 20091130

REACTIONS (10)
  - CELLULITIS [None]
  - DRUG WITHDRAWAL SYNDROME [None]
  - FALL [None]
  - PYREXIA [None]
  - ANXIETY [None]
  - DELAYED RECOVERY FROM ANAESTHESIA [None]
  - ARTHRALGIA [None]
  - ARTHRITIS [None]
  - MENISCUS LESION [None]
  - WEIGHT DECREASED [None]
